FAERS Safety Report 24326925 (Version 1)
Quarter: 2024Q3

REPORT INFORMATION
  Report Type: Spontaneous
  Country: US (occurrence: US)
  Receive Date: 20240917
  Receipt Date: 20240917
  Transmission Date: 20241017
  Serious: No
  Sender: ROCHE
  Company Number: US-ROCHE-10000082760

PATIENT
  Sex: Female

DRUGS (6)
  1. ACTEMRA [Suspect]
     Active Substance: TOCILIZUMAB
     Indication: Senile osteoporosis
     Route: 065
  2. AZELASTINE H SOL 0.1% [Concomitant]
  3. CALCIUM + D CHE 500-1000M [Concomitant]
  4. PROBIOTIC TBE [Concomitant]
  5. VITAMIN C TAB 1000MG [Concomitant]
  6. VITAMIN D3 POW 100000UNIT [Concomitant]

REACTIONS (2)
  - Off label use [Unknown]
  - No adverse event [Unknown]
